FAERS Safety Report 7482487-3 (Version None)
Quarter: 2011Q2

REPORT INFORMATION
  Report Type: 
  Country: None (occurrence: None)
  Receive Date: 20110516
  Receipt Date: 20110503
  Transmission Date: 20111010
  Serious: Yes (Other)
  Sender: FDA-Public Use
  Company Number: US-UCBSA-032183

PATIENT
  Age: 52 Year
  Sex: Male
  Weight: 102 kg

DRUGS (15)
  1. BENICAR HCT [Concomitant]
     Dosage: 12.5 MG - 40 MG
     Route: 048
     Dates: start: 20090901
  2. DEPAKOTE ER [Concomitant]
     Route: 048
     Dates: start: 19970801
  3. PRIMIDONE [Concomitant]
     Indication: GRAND MAL CONVULSION
     Route: 048
     Dates: start: 20020101
  4. KEPPRA [Suspect]
     Dates: start: 20071108, end: 20071108
  5. DEPAKOTE ER [Concomitant]
     Route: 048
     Dates: start: 20020101
  6. PRIMIDONE [Concomitant]
     Route: 048
     Dates: start: 20040615
  7. XALATAN [Concomitant]
     Indication: GLAUCOMA
     Route: 047
     Dates: start: 19950601
  8. VERAPAMIL [Concomitant]
     Route: 048
  9. DEPAKOTE ER [Concomitant]
     Indication: EPILEPSY
     Route: 048
     Dates: start: 19920101
  10. ROSUVASTATIN [Concomitant]
  11. KEPPRA [Suspect]
     Indication: EPILEPSY
     Dates: start: 20070903, end: 20070101
  12. BENICAR HCT [Concomitant]
     Indication: HYPERTENSION
     Dosage: 12.5 MG - 20 MG DAILY
     Route: 048
     Dates: start: 19900101
  13. IMODIUM [Concomitant]
     Indication: DIARRHOEA
     Route: 048
     Dates: start: 19890101
  14. PRIMIDONE [Concomitant]
     Route: 048
     Dates: start: 20101026
  15. VERAPAMIL [Concomitant]
     Route: 048
     Dates: start: 19960401

REACTIONS (1)
  - BINOCULAR EYE MOVEMENT DISORDER [None]
